FAERS Safety Report 9342228 (Version 1)
Quarter: 2013Q2

REPORT INFORMATION
  Report Type: Spontaneous
  Country: US (occurrence: US)
  Receive Date: 20130611
  Receipt Date: 20130611
  Transmission Date: 20140414
  Serious: No
  Sender: FDA-Public Use
  Company Number: US-BIOGENIDEC-2013BI051483

PATIENT
  Sex: Female

DRUGS (1)
  1. AVONEX [Suspect]
     Indication: MULTIPLE SCLEROSIS
     Route: 030
     Dates: start: 20130122

REACTIONS (5)
  - Injection site haemorrhage [Recovered/Resolved with Sequelae]
  - Pain of skin [Recovered/Resolved]
  - Pain [Recovered/Resolved with Sequelae]
  - Headache [Recovered/Resolved]
  - Injection site pain [Recovered/Resolved]
